FAERS Safety Report 4491273-8 (Version None)
Quarter: 2004Q4

REPORT INFORMATION
  Report Type: 
  Country: None (occurrence: None)
  Receive Date: 20041101
  Receipt Date: 20041101
  Transmission Date: 20050328
  Serious: Yes (Hospitalization)
  Sender: FDA-Public Use
  Company Number: None

PATIENT
  Age: 68 Year
  Sex: Female
  Weight: 58.5 kg

DRUGS (7)
  1. CISPLATIN [Suspect]
     Indication: SMALL CELL LUNG CANCER LIMITED STAGE
     Dosage: 98.4 MG , 99 MG, 65 MG
     Dates: start: 20040817
  2. CISPLATIN [Suspect]
     Indication: SMALL CELL LUNG CANCER LIMITED STAGE
     Dosage: 98.4 MG , 99 MG, 65 MG
     Dates: start: 20040921
  3. CISPLATIN [Suspect]
     Indication: SMALL CELL LUNG CANCER LIMITED STAGE
     Dosage: 98.4 MG , 99 MG, 65 MG
     Dates: start: 20041019
  4. ETOPOSIDE [Suspect]
     Dosage: 197 MG, 198 MG, 130 MG
     Dates: start: 20040817
  5. ETOPOSIDE [Suspect]
     Dosage: 197 MG, 198 MG, 130 MG
     Dates: start: 20040921
  6. ETOPOSIDE [Suspect]
     Dosage: 197 MG, 198 MG, 130 MG
     Dates: start: 20041019
  7. RADIOTHERAPY [Concomitant]

REACTIONS (4)
  - ANAEMIA [None]
  - DEHYDRATION [None]
  - NAUSEA [None]
  - VOMITING [None]
